FAERS Safety Report 6132400-6 (Version None)
Quarter: 2009Q1

REPORT INFORMATION
  Report Type: 
  Country: None (occurrence: None)
  Receive Date: 20090325
  Receipt Date: 20090325
  Transmission Date: 20090719
  Serious: Yes (Death, Hospitalization)
  Sender: FDA-Public Use
  Company Number: PHHO2004DK17976

PATIENT
  Sex: Female
  Weight: 60.6 kg

DRUGS (3)
  1. CGS 20267 T30748+ [Suspect]
     Indication: BREAST CANCER
     Dosage: 2.5 MG, QD
     Route: 048
     Dates: start: 20001011
  2. OLANZAPINE [Concomitant]
     Indication: BIPOLAR I DISORDER
  3. LITHIUM CITRATE [Concomitant]
     Indication: BIPOLAR I DISORDER

REACTIONS (7)
  - ARTERIOSCLEROSIS [None]
  - CEREBRAL DISORDER [None]
  - CEREBRAL INFARCTION [None]
  - CONFUSIONAL STATE [None]
  - DEATH [None]
  - HEPATIC STEATOSIS [None]
  - RALES [None]
